FAERS Safety Report 9363045 (Version 1)
Quarter: 2013Q2

REPORT INFORMATION
  Report Type: Spontaneous
  Country: US (occurrence: US)
  Receive Date: 20130624
  Receipt Date: 20130624
  Transmission Date: 20140414
  Serious: No
  Sender: FDA-Public Use
  Company Number: US-PFIZER INC-2013187674

PATIENT
  Age: 20 Year
  Sex: Female

DRUGS (1)
  1. EFFEXOR [Suspect]
     Indication: DEPRESSION
     Dosage: 37.5 MG, UNK
     Dates: start: 201301, end: 2013

REACTIONS (3)
  - Drug withdrawal syndrome [Unknown]
  - Paraesthesia [Unknown]
  - Headache [Unknown]
